FAERS Safety Report 10102177 (Version 1)
Quarter: 2014Q2

REPORT INFORMATION
  Report Type: Spontaneous
  Country: US (occurrence: US)
  Receive Date: 20140424
  Receipt Date: 20140424
  Transmission Date: 20141212
  Serious: No
  Sender: FDA-Public Use
  Company Number: US-PFIZER INC-2014110412

PATIENT
  Age: 66 Year
  Sex: Male
  Weight: 86.17 kg

DRUGS (4)
  1. ZYVOX [Suspect]
     Indication: RENAL CYST
     Dosage: 600 MG, 2X/DAY
     Route: 048
     Dates: start: 20140408
  2. ZYVOX [Suspect]
     Indication: ENTEROCOCCAL INFECTION
  3. CIPRO [Concomitant]
     Indication: URINARY TRACT INFECTION BACTERIAL
     Dosage: 500 MG, 2X/DAY
  4. PRILOSEC [Concomitant]
     Indication: GASTROOESOPHAGEAL REFLUX DISEASE
     Dosage: 40 MG, 4X/WEEK

REACTIONS (3)
  - Expired product administered [Unknown]
  - Vomiting [Unknown]
  - Abdominal pain upper [Not Recovered/Not Resolved]
